FAERS Safety Report 20170190 (Version 1)
Quarter: 2021Q4

REPORT INFORMATION
  Report Type: Spontaneous
  Country: US (occurrence: None)
  Receive Date: 20211210
  Receipt Date: 20211210
  Transmission Date: 20220303
  Serious: Yes (Other)
  Sender: FDA-Public Use
  Company Number: US-Fresenius Kabi-FK202113752

PATIENT
  Age: 49 Year
  Sex: Female

DRUGS (4)
  1. FLUOROURACIL [Suspect]
     Active Substance: FLUOROURACIL
     Indication: Medullary thyroid cancer
     Dosage: 400 MG/M2 FOLLOWED BY 2400 MG/M2 INFUSION OVER 46 HOURS
     Route: 042
     Dates: start: 200803
  2. OXALIPLATIN [Suspect]
     Active Substance: OXALIPLATIN
     Indication: Medullary thyroid cancer
     Dosage: EVERY 2 WEEKS
     Route: 065
     Dates: start: 200803
  3. LEUCOVORIN [Suspect]
     Active Substance: LEUCOVORIN
     Indication: Medullary thyroid cancer
     Dosage: FOLINIC ACID [LEUCOVORIN]
     Route: 065
     Dates: start: 200803
  4. SUNITINIB [Suspect]
     Active Substance: SUNITINIB
     Indication: Medullary thyroid cancer
     Dosage: DAILY FOR 4 WEEKS FOLLOWED BY A 2-WEEK REST PERIOD
     Route: 065
     Dates: start: 200803

REACTIONS (1)
  - Pseudocirrhosis [Unknown]
